FAERS Safety Report 20964135 (Version 3)
Quarter: 2022Q3

REPORT INFORMATION
  Report Type: Spontaneous
  Country: US (occurrence: US)
  Receive Date: 20220615
  Receipt Date: 20220719
  Transmission Date: 20221027
  Serious: Yes (Life-Threatening, Other)
  Sender: FDA-Public Use
  Company Number: US-PFIZER INC-202200820475

PATIENT
  Age: 6 Year
  Sex: Male

DRUGS (3)
  1. METHOTREXATE SODIUM [Suspect]
     Active Substance: METHOTREXATE SODIUM
     Indication: Osteosarcoma
     Dosage: 12 G/M2, HIGH DOSE, OVER A PERIOD OF 5 MONTHS
     Route: 042
  2. METHOTREXATE SODIUM [Suspect]
     Active Substance: METHOTREXATE SODIUM
     Dosage: 18.7 , G/M2, GRADUALLY INCREASED
     Route: 042
  3. LEUCOVORIN [Concomitant]
     Active Substance: LEUCOVORIN

REACTIONS (3)
  - Neurotoxicity [Recovering/Resolving]
  - Leukoencephalopathy [Recovering/Resolving]
  - Systemic toxicity [Recovering/Resolving]
